FAERS Safety Report 7737559-2 (Version None)
Quarter: 2011Q3

REPORT INFORMATION
  Report Type: 
  Country: None (occurrence: None)
  Receive Date: 20110908
  Receipt Date: 20110907
  Transmission Date: 20111222
  Serious: Yes (Death)
  Sender: FDA-Public Use
  Company Number: VE-PFIZER INC-2011185853

PATIENT
  Age: 77 Year
  Sex: Male

DRUGS (3)
  1. FOLIC ACID [Concomitant]
     Dosage: 10 MG
     Route: 048
  2. CORAZEM [Concomitant]
     Indication: CARDIAC DISORDER
     Dosage: 120 MG
     Route: 048
  3. LIPITOR [Suspect]
     Indication: VENOUS OCCLUSION
     Dosage: 40 MG, 1X/DAY
     Route: 048
     Dates: start: 20080101, end: 20110201

REACTIONS (1)
  - COLON CANCER [None]
